FAERS Safety Report 17823334 (Version 1)
Quarter: 2020Q2

REPORT INFORMATION
  Report Type: Spontaneous
  Country: US (occurrence: US)
  Receive Date: 20200523
  Receipt Date: 20200523
  Transmission Date: 20200714
  Serious: Yes (Hospitalization)
  Sender: FDA-Public Use
  Company Number: None

PATIENT
  Age: 60 Year
  Sex: Female

DRUGS (1)
  1. CHLORHEXIDINE GLUCONATE CLOTH. [Suspect]
     Active Substance: CHLORHEXIDINE GLUCONATE
     Indication: INFECTION PROPHYLAXIS
     Dates: start: 20181217, end: 20181218

REACTIONS (2)
  - Anaphylactic shock [None]
  - Application site urticaria [None]

NARRATIVE: CASE EVENT DATE: 20181218
